FAERS Safety Report 22611516 (Version 1)
Quarter: 2023Q2

REPORT INFORMATION
  Report Type: Spontaneous
  Country: HR (occurrence: HR)
  Receive Date: 20230616
  Receipt Date: 20230616
  Transmission Date: 20230722
  Serious: Yes (Other)
  Sender: FDA-Public Use
  Company Number: HR-BRISTOL-MYERS SQUIBB COMPANY-2023-076440

PATIENT
  Age: 88 Year
  Sex: Female
  Weight: 55 kg

DRUGS (8)
  1. APIXABAN [Suspect]
     Active Substance: APIXABAN
     Indication: Product used for unknown indication
  2. BISOPROLOL COR [Concomitant]
     Indication: Product used for unknown indication
     Dosage: 2.5 MG TABLET IN THE MORNING
  3. METILDIGOXIN [Concomitant]
     Active Substance: METILDIGOXIN
     Indication: Product used for unknown indication
     Dosage: 1X1 TABLET
  4. EPLERENONE [Concomitant]
     Active Substance: EPLERENONE
     Indication: Product used for unknown indication
     Dosage: 25 MG ONE TABLET
  5. TORSEMIDE [Concomitant]
     Active Substance: TORSEMIDE
     Indication: Product used for unknown indication
     Dosage: 10 MG ONE TABLET IN MORNING
  6. PANTOPRAZOLE [Concomitant]
     Active Substance: PANTOPRAZOLE
     Indication: Product used for unknown indication
     Dosage: 20 MG ONE TABLET IN MORNING
  7. METOCLOPRAMIDE [Concomitant]
     Active Substance: METOCLOPRAMIDE
     Indication: Product used for unknown indication
     Dosage: 2X1 TABLET AS NEEDED
  8. MEGESTROL ACETATE [Concomitant]
     Active Substance: MEGESTROL ACETATE
     Indication: Product used for unknown indication
     Dosage: SYRUP 20-25 ML IN THE MORNING FOR 3 MONTHS

REACTIONS (1)
  - Diverticulum intestinal [Unknown]
